FAERS Safety Report 5700503-3 (Version None)
Quarter: 2008Q2

REPORT INFORMATION
  Report Type: 
  Country: None (occurrence: None)
  Receive Date: 20080410
  Receipt Date: 20080331
  Transmission Date: 20081010
  Serious: Yes (Hospitalization)
  Sender: FDA-Public Use
  Company Number: CA-JNJFOC-20080204884

PATIENT
  Sex: Male

DRUGS (7)
  1. SPORANOX [Suspect]
     Route: 065
  2. SPORANOX [Suspect]
     Indication: BLASTOMYCOSIS
     Route: 065
  3. INSULIN [Concomitant]
     Indication: HYPERGLYCAEMIA
     Route: 058
  4. RAMIPRIL [Concomitant]
     Route: 048
  5. PARIET [Concomitant]
     Indication: GASTROOESOPHAGEAL REFLUX DISEASE
     Route: 048
  6. TRAZODONE HCL [Concomitant]
     Indication: SLEEP DISORDER THERAPY
     Route: 048
  7. LIPITOR [Concomitant]
     Route: 065

REACTIONS (4)
  - ABDOMINAL PAIN [None]
  - DIZZINESS [None]
  - HEADACHE [None]
  - HYPOGLYCAEMIA [None]
